FAERS Safety Report 8344562-0 (Version None)
Quarter: 2012Q2

REPORT INFORMATION
  Report Type: 
  Country: None (occurrence: None)
  Receive Date: 20120508
  Receipt Date: 20120427
  Transmission Date: 20120825
  Serious: Yes (Disabling, Other)
  Sender: FDA-Public Use
  Company Number: US-PERRIGO-12US003884

PATIENT
  Sex: Male
  Weight: 108.84 kg

DRUGS (1)
  1. MINOXIDIL [Suspect]
     Indication: ALOPECIA
     Dosage: 1 ML, BID
     Route: 061
     Dates: start: 20111101, end: 20120415

REACTIONS (13)
  - RASH PAPULAR [None]
  - LYMPHOCYTIC INFILTRATION [None]
  - INFLAMMATION [None]
  - PRURITUS [None]
  - BLISTER [None]
  - SEBORRHOEA [None]
  - BURNING SENSATION [None]
  - DERMATITIS [None]
  - SKIN WRINKLING [None]
  - FOLLICULITIS [None]
  - SKIN IRRITATION [None]
  - HYPERSENSITIVITY [None]
  - SWELLING [None]
